FAERS Safety Report 5357927-6 (Version None)
Quarter: 2007Q2

REPORT INFORMATION
  Report Type: 
  Country: None (occurrence: None)
  Receive Date: 20070614
  Receipt Date: 20070601
  Transmission Date: 20071010
  Serious: Yes (Death)
  Sender: FDA-Public Use
  Company Number: US-ELI_LILLY_AND_COMPANY-US_980605558

PATIENT
  Age: 38 Year
  Sex: Male
  Weight: 97.273 kg

DRUGS (3)
  1. ZYPREXA [Suspect]
     Indication: SCHIZOPHRENIA, PARANOID TYPE
     Dosage: 30 MG, DAILY (1/D)
     Route: 048
     Dates: start: 19980201, end: 19980420
  2. RISPERDAL [Concomitant]
     Indication: SCHIZOPHRENIA
     Dosage: 0.5 MG, DAILY (1/D)
     Route: 048
  3. CLONAZEPAM [Concomitant]
     Dosage: 1 MG, DAILY (1/D)

REACTIONS (3)
  - DRUG TOXICITY [None]
  - OVERDOSE [None]
  - VOMITING [None]
